FAERS Safety Report 7681075-3 (Version None)
Quarter: 2011Q3

REPORT INFORMATION
  Report Type: 
  Country: None (occurrence: None)
  Receive Date: 20110812
  Receipt Date: 20110809
  Transmission Date: 20111222
  Serious: Yes (Hospitalization)
  Sender: FDA-Public Use
  Company Number: US-GILEAD-2011-0042502

PATIENT
  Sex: Female

DRUGS (11)
  1. LETAIRIS [Suspect]
     Indication: PULMONARY HYPERTENSION
     Route: 048
     Dates: start: 20110128
  2. REVATIO [Concomitant]
  3. FUROSEMIDE [Concomitant]
  4. DEXILANT [Concomitant]
  5. ALLOPURINOL [Concomitant]
  6. ALBUTEROL SULFATE AUTOHALER [Concomitant]
  7. SPIRIVA [Concomitant]
  8. METOPROLOL TARTRATE [Concomitant]
  9. OXYGEN [Concomitant]
  10. AMLODIPINE [Concomitant]
  11. ASPIRIN [Concomitant]

REACTIONS (2)
  - GALLBLADDER DISORDER [None]
  - DYSPNOEA [None]
